FAERS Safety Report 10052427 (Version 1)
Quarter: 2014Q2

REPORT INFORMATION
  Report Type: Spontaneous
  Country: US (occurrence: None)
  Receive Date: 20140401
  Receipt Date: 20140401
  Transmission Date: 20141212
  Serious: Yes (Other)
  Sender: FDA-Public Use
  Company Number: None

PATIENT
  Age: 65 Year
  Sex: Male
  Weight: 90.72 kg

DRUGS (1)
  1. PRO CLEARZ [Suspect]
     Indication: ONYCHOMYCOSIS

REACTIONS (2)
  - Drug ineffective [None]
  - Product label issue [None]
